FAERS Safety Report 15434641 (Version 4)
Quarter: 2018Q4

REPORT INFORMATION
  Report Type: Spontaneous
  Country: TH (occurrence: TH)
  Receive Date: 20180927
  Receipt Date: 20181108
  Transmission Date: 20190204
  Serious: Yes (Life-Threatening, Hospitalization, Other)
  Sender: FDA-Public Use
  Company Number: TH-BRISTOL-MYERS SQUIBB COMPANY-BMS-2018-089236

PATIENT
  Age: 75 Year
  Sex: Male
  Weight: 70 kg

DRUGS (5)
  1. KEPPRA [Concomitant]
     Active Substance: LEVETIRACETAM
     Indication: POST STROKE SEIZURE
     Dosage: 10 UNK, BID
     Route: 050
  2. AMIODARONE [Concomitant]
     Active Substance: AMIODARONE
     Indication: TACHYCARDIA
     Dosage: 100 MG, DAILY
     Route: 065
  3. ELIQUIS [Suspect]
     Active Substance: APIXABAN
     Indication: CEREBROVASCULAR ACCIDENT PROPHYLAXIS
     Dosage: 2.5 MG, BID
     Route: 050
     Dates: start: 20170907, end: 20180813
  4. MADOPAR DISPERSIBLE [Concomitant]
     Indication: PARKINSONISM
     Dosage: 125 MG, BID
     Route: 050
  5. ATORVASTATIN [Concomitant]
     Active Substance: ATORVASTATIN
     Indication: DYSLIPIDAEMIA
     Dosage: 10 MG, DAILY
     Route: 050

REACTIONS (5)
  - Haemoptysis [Recovered/Resolved]
  - Wrong technique in product usage process [Unknown]
  - Upper gastrointestinal haemorrhage [Recovered/Resolved]
  - Shock haemorrhagic [Recovering/Resolving]
  - Gastric ulcer [Recovering/Resolving]

NARRATIVE: CASE EVENT DATE: 20180812
